FAERS Safety Report 4842774-1 (Version None)
Quarter: 2005Q4

REPORT INFORMATION
  Report Type: 
  Country: None (occurrence: None)
  Receive Date: 20051128
  Receipt Date: 20051111
  Transmission Date: 20060501
  Serious: Yes (Hospitalization)
  Sender: FDA-Public Use
  Company Number: CLOF-10149

PATIENT
  Age: 34 Year
  Sex: Male

DRUGS (19)
  1. CLOFARABINE [Suspect]
     Indication: ACUTE MYELOID LEUKAEMIA
     Dosage: 41.8 MG QD X 5; IV
     Route: 042
     Dates: start: 20041006, end: 20041010
  2. IDARUBICIN HCL [Suspect]
     Indication: ACUTE MYELOID LEUKAEMIA
     Dosage: 11.2 MG QD X 3; IV
     Route: 042
     Dates: start: 20041005, end: 20041007
  3. CYTARABINE [Suspect]
     Indication: ACUTE MYELOID LEUKAEMIA
     Dosage: 1.3 MG QD X 5; IV
     Route: 042
     Dates: start: 20041005, end: 20041009
  4. LEVAQUIN [Concomitant]
  5. VALTREX [Concomitant]
  6. PRILOSEC [Concomitant]
  7. FOLIC ACID [Concomitant]
  8. XANAX [Concomitant]
  9. CEFEPIME [Concomitant]
  10. VANCOMYCIN [Concomitant]
  11. NYSTATIN [Concomitant]
  12. MULTI-VITAMIN [Concomitant]
  13. AMBISOME [Concomitant]
  14. BENADRYL [Concomitant]
  15. TYLENOL (CAPLET) [Concomitant]
  16. DEMEROL [Concomitant]
  17. MORPHINE [Concomitant]
  18. HYDROCORTISONE [Concomitant]
  19. NEPROXEN [Concomitant]

REACTIONS (8)
  - COMPUTERISED TOMOGRAM ABNORMAL [None]
  - DYSPHAGIA [None]
  - FEBRILE NEUTROPENIA [None]
  - OBSTRUCTIVE AIRWAYS DISORDER [None]
  - ODYNOPHAGIA [None]
  - PERITONSILLAR ABSCESS [None]
  - PHARYNGOLARYNGEAL PAIN [None]
  - TONSILLITIS [None]
